FAERS Safety Report 22654474 (Version 1)
Quarter: 2023Q2

REPORT INFORMATION
  Report Type: Spontaneous
  Country: US (occurrence: US)
  Receive Date: 20230629
  Receipt Date: 20230629
  Transmission Date: 20230721
  Serious: Yes (Other)
  Sender: FDA-Public Use
  Company Number: US-BRISTOL-MYERS SQUIBB COMPANY-2023-089633

PATIENT
  Age: 87 Year
  Sex: Female

DRUGS (1)
  1. CAMZYOS [Suspect]
     Active Substance: MAVACAMTEN
     Indication: Hypertrophic cardiomyopathy
     Dosage: DOSE : 5MG;     FREQ : ONCE A DAY
     Route: 048
     Dates: start: 2023, end: 2023

REACTIONS (1)
  - Mitral valve incompetence [Unknown]
